FAERS Safety Report 25531944 (Version 2)
Quarter: 2025Q3

REPORT INFORMATION
  Report Type: Report from Study
  Country: US (occurrence: US)
  Receive Date: 20250709
  Receipt Date: 20250717
  Transmission Date: 20251021
  Serious: No
  Sender: MALLINCKRODT
  Company Number: US-MALLINCKRODT-MNK202504152

PATIENT
  Age: 50 Year
  Sex: Female
  Weight: 223 kg

DRUGS (1)
  1. CORTICOTROPIN [Suspect]
     Active Substance: CORTICOTROPIN
     Indication: Orbital myositis
     Dosage: 80 UNITS
     Route: 058
     Dates: start: 20250702

REACTIONS (10)
  - Diplopia [Unknown]
  - Eye inflammation [Unknown]
  - Fear of injection [Unknown]
  - Erythema [Recovering/Resolving]
  - Somnolence [Unknown]
  - Weight increased [Unknown]
  - Injection site pruritus [Recovered/Resolved]
  - Injection site discharge [Unknown]
  - Injection site irritation [Recovering/Resolving]
  - Injection site pain [Recovering/Resolving]

NARRATIVE: CASE EVENT DATE: 20250701
